FAERS Safety Report 4930780-8 (Version None)
Quarter: 2006Q1

REPORT INFORMATION
  Report Type: 
  Country: None (occurrence: None)
  Receive Date: 20060227
  Receipt Date: 20060215
  Transmission Date: 20060701
  Serious: Yes (Hospitalization, Disabling)
  Sender: FDA-Public Use
  Company Number: 2005038151

PATIENT
  Age: 53 Year
  Sex: Male

DRUGS (3)
  1. SILDENAFIL CITRATE [Suspect]
     Indication: ERECTILE DYSFUNCTION
     Dosage: 100 MG, ORAL
     Route: 048
     Dates: start: 20030601
  2. FOLIC ACID [Concomitant]
  3. PANTOPRAZOLE SODIUM [Concomitant]

REACTIONS (1)
  - CEREBRAL ISCHAEMIA [None]
